FAERS Safety Report 7962250-7 (Version None)
Quarter: 2011Q4

REPORT INFORMATION
  Report Type: 
  Country: None (occurrence: None)
  Receive Date: 20111207
  Receipt Date: 20111201
  Transmission Date: 20120403
  Serious: Yes (Death, Hospitalization, Other)
  Sender: FDA-Public Use
  Company Number: PHHY2011US105987

PATIENT
  Age: 62 Year
  Sex: Male

DRUGS (3)
  1. AZATHIOPRINE [Concomitant]
     Indication: RENAL TRANSPLANT
  2. PREDNISONE [Concomitant]
     Indication: RENAL TRANSPLANT
  3. CYCLOSPORINE [Suspect]
     Indication: RENAL TRANSPLANT
     Dosage: UNK
     Dates: start: 19850101

REACTIONS (5)
  - METASTATIC NEOPLASM [None]
  - SQUAMOUS CELL CARCINOMA OF SKIN [None]
  - ACTINIC KERATOSIS [None]
  - MALIGNANT FIBROUS HISTIOCYTOMA RECURRENT [None]
  - MALIGNANT FIBROUS HISTIOCYTOMA [None]
